FAERS Safety Report 8785200 (Version 1)
Quarter: 2012Q4

REPORT INFORMATION
  Report Type: 
  Country: US (occurrence: US)
  Receive Date: 20120914
  Receipt Date: 20120914
  Transmission Date: 20130627
  Serious: Yes (Other)
  Sender: FDA-Public Use
  Company Number: US-JNJFOC-20120904556

PATIENT
  Age: 69 Year
  Sex: Male
  Weight: 79.38 kg

DRUGS (4)
  1. VISINE TEARS DRY EYE RELIEF [Suspect]
     Indication: EYE IRRITATION
     Dosage: 1-3 drops in each eye, every hour while awake
     Route: 047
     Dates: end: 20120824
  2. VISINE TEARS DRY EYE RELIEF [Suspect]
     Indication: GLAUCOMA
     Dosage: 1-3 drops in each eye, every hour while awake
     Route: 047
     Dates: end: 20120824
  3. OPCON A [Concomitant]
     Indication: GLAUCOMA
     Route: 047
  4. LUMIGAN [Concomitant]
     Indication: GLAUCOMA
     Route: 047

REACTIONS (3)
  - Ocular hyperaemia [Not Recovered/Not Resolved]
  - Foreign body sensation in eyes [Not Recovered/Not Resolved]
  - Off label use [Unknown]
